FAERS Safety Report 6787465-5 (Version None)
Quarter: 2010Q2

REPORT INFORMATION
  Report Type: 
  Country: None (occurrence: None)
  Receive Date: 20100623
  Receipt Date: 20070518
  Transmission Date: 20101027
  Serious: Yes (Other)
  Sender: FDA-Public Use
  Company Number: PFIZER INC-2007019959

PATIENT
  Sex: Female
  Weight: 60.8 kg

DRUGS (4)
  1. SUTENT [Suspect]
     Indication: RENAL CANCER
     Route: 048
     Dates: start: 20060801, end: 20070111
  2. FOSAMAX [Concomitant]
  3. MIRALAX [Concomitant]
  4. PROTONIX [Concomitant]

REACTIONS (1)
  - BLOOD CREATININE INCREASED [None]
